FAERS Safety Report 6297525-3 (Version None)
Quarter: 2009Q3

REPORT INFORMATION
  Report Type: 
  Country: None (occurrence: None)
  Receive Date: 20090805
  Receipt Date: 20090729
  Transmission Date: 20100115
  Serious: Yes (Hospitalization)
  Sender: FDA-Public Use
  Company Number: FR-ASTRAZENECA-2009SE06251

PATIENT
  Age: 25455 Day
  Sex: Male

DRUGS (9)
  1. SYMBICORT [Suspect]
     Dosage: 320/9 UG, 4 PUFFS PER DAY
     Route: 055
  2. OXEOL [Suspect]
     Route: 048
  3. XOLAIR [Suspect]
     Dosage: 375 MG EVERY 15 DAYS
     Route: 042
     Dates: start: 20090408
  4. VENTOLIN [Suspect]
     Route: 055
  5. INIPOMP [Suspect]
     Route: 048
  6. HYDROCORTISONE [Suspect]
     Route: 048
  7. KARDEGIC [Suspect]
     Route: 048
  8. DAFALGAN [Suspect]
     Route: 048
  9. SPIRIVA [Concomitant]
     Route: 055

REACTIONS (1)
  - AMNESIA [None]
